FAERS Safety Report 8006752-6 (Version None)
Quarter: 2011Q4

REPORT INFORMATION
  Report Type: 
  Country: None (occurrence: None)
  Receive Date: 20111227
  Receipt Date: 20111215
  Transmission Date: 20120403
  Serious: Yes (Hospitalization, Other)
  Sender: FDA-Public Use
  Company Number: AU-JNJFOC-20111206885

PATIENT
  Sex: Male
  Weight: 84.5 kg

DRUGS (3)
  1. ABIRATERONE ACETATE [Suspect]
     Indication: PROSTATE CANCER METASTATIC
     Route: 048
     Dates: start: 20111209, end: 20111214
  2. ABIRATERONE ACETATE [Suspect]
     Route: 048
  3. PREDNISOLONE [Suspect]
     Indication: PROSTATE CANCER METASTATIC
     Route: 048
     Dates: start: 20111209, end: 20111214

REACTIONS (2)
  - NAUSEA [None]
  - VOMITING [None]
